FAERS Safety Report 25612927 (Version 1)
Quarter: 2025Q3

REPORT INFORMATION
  Report Type: Spontaneous
  Country: US (occurrence: None)
  Receive Date: 20250726
  Receipt Date: 20250726
  Transmission Date: 20251020
  Serious: Yes (Other)
  Sender: FDA-CTU
  Company Number: None

PATIENT
  Sex: Female

DRUGS (1)
  1. ABILIFY [Suspect]
     Active Substance: ARIPIPRAZOLE
     Indication: Depression

REACTIONS (8)
  - Weight increased [None]
  - Waist circumference increased [None]
  - Asthenia [None]
  - Withdrawal syndrome [None]
  - Insomnia [None]
  - Agitation [None]
  - Restlessness [None]
  - Quality of life decreased [None]
